FAERS Safety Report 9348591 (Version 2)
Quarter: 2013Q2

REPORT INFORMATION
  Report Type: Spontaneous
  Country: JP (occurrence: JP)
  Receive Date: 20130614
  Receipt Date: 20130624
  Transmission Date: 20140414
  Serious: Yes (Life-Threatening, Other)
  Sender: FDA-Public Use
  Company Number: JP-BAYER-2013-070249

PATIENT
  Age: 37 Year
  Sex: Female
  Weight: 53 kg

DRUGS (2)
  1. ADALAT [Suspect]
     Route: 048
  2. METHYLDOPA [Concomitant]
     Route: 048

REACTIONS (4)
  - Cardiac arrest [None]
  - Hypertensive nephropathy [None]
  - Caesarean section [None]
  - Pulmonary oedema [None]
